FAERS Safety Report 25654185 (Version 2)
Quarter: 2025Q4

REPORT INFORMATION
  Report Type: Spontaneous
  Country: CA (occurrence: CA)
  Receive Date: 20250807
  Receipt Date: 20251003
  Transmission Date: 20260119
  Serious: Yes (Other)
  Sender: CELLTRION
  Company Number: CA-CELLTRION INC.-2025CA026149

PATIENT

DRUGS (3)
  1. INFLIXIMAB [Suspect]
     Active Substance: INFLIXIMAB
     Indication: Colitis ulcerative
     Dosage: 120 MG EVERY 2 WEEKS (MAINTENANCE)
     Route: 058
     Dates: start: 20250516
  2. INFLIXIMAB [Suspect]
     Active Substance: INFLIXIMAB
     Indication: Crohn^s disease
     Dosage: 120 MG EVERY 2 WEEKS (MAINTENANCE)
     Route: 058
     Dates: start: 20250730
  3. INFLIXIMAB [Suspect]
     Active Substance: INFLIXIMAB
     Indication: Colitis ulcerative
     Dosage: 400 MG, INDUCTION DOSE (LOADING - 400 MG - IV (INTRAVENOUS) WEEKS 0, 2, AND 6)
     Route: 042
     Dates: start: 20250516, end: 20250702

REACTIONS (6)
  - Haematochezia [Unknown]
  - Frequent bowel movements [Unknown]
  - Condition aggravated [Unknown]
  - Malaise [Unknown]
  - Diarrhoea [Unknown]
  - Overdose [Unknown]

NARRATIVE: CASE EVENT DATE: 20250101
